FAERS Safety Report 4598607-4 (Version None)
Quarter: 2005Q1

REPORT INFORMATION
  Report Type: 
  Country: None (occurrence: None)
  Receive Date: 20050207
  Receipt Date: 20040628
  Transmission Date: 20050727
  Serious: Yes (Hospitalization)
  Sender: FDA-Public Use
  Company Number: PROG00204002139

PATIENT
  Age: 60 Year
  Sex: Female
  Weight: 51 kg

DRUGS (6)
  1. PROMETRIUM [Suspect]
     Indication: HORMONE REPLACEMENT THERAPY
     Dosage: 100 MILLIGRAM(S) QD ORAL, 100 MILLIGRAM(S) QD ORAL
     Route: 048
     Dates: start: 20000401, end: 20001001
  2. PROMETRIUM [Suspect]
     Indication: HORMONE REPLACEMENT THERAPY
     Dosage: 100 MILLIGRAM(S) QD ORAL, 100 MILLIGRAM(S) QD ORAL
     Route: 048
     Dates: start: 19981211
  3. PREMPRO [Suspect]
     Indication: HORMONE REPLACEMENT THERAPY
     Dosage: 1 DOSAGE FORM QD ORAL
     Route: 048
     Dates: start: 19961116, end: 20020401
  4. PREMARIN [Suspect]
     Indication: HORMONE REPLACEMENT THERAPY
     Dosage: 0.625 MILLIGRAM(S) QD ORAL
     Route: 048
     Dates: start: 19880101, end: 19961116
  5. PROVERA [Concomitant]
     Indication: HORMONE REPLACEMENT THERAPY
     Dosage: 2.5 MILLIGRAM(S) QD ORAL
     Route: 048
     Dates: start: 19880101, end: 19961116
  6. ESTRACE [Suspect]
     Indication: HORMONE REPLACEMENT THERAPY
     Dosage: DAILY ORAL
     Route: 048
     Dates: start: 20000401, end: 20001001

REACTIONS (1)
  - BREAST CANCER [None]
